FAERS Safety Report 8916877 (Version 1)
Quarter: 2012Q4

REPORT INFORMATION
  Report Type: 
  Country: ES (occurrence: ES)
  Receive Date: 20121120
  Receipt Date: 20121120
  Transmission Date: 20130627
  Serious: Yes (Hospitalization)
  Sender: FDA-Public Use
  Company Number: ES-ROCHE-1157000

PATIENT
  Age: 55 Year
  Sex: Female

DRUGS (4)
  1. PEGASYS [Suspect]
     Indication: CHRONIC HEPATITIS C
     Route: 058
     Dates: start: 20120417, end: 20120525
  2. INCIVO [Suspect]
     Indication: CHRONIC HEPATITIS C
     Route: 048
     Dates: start: 20120417, end: 20120525
  3. RIBAVIRINA [Suspect]
     Indication: CHRONIC HEPATITIS C
     Route: 048
     Dates: start: 20120417, end: 20120525
  4. SERETIDE [Concomitant]
     Indication: ASTHMA
     Route: 055

REACTIONS (2)
  - Anaemia [Recovering/Resolving]
  - Epistaxis [Recovered/Resolved]
